FAERS Safety Report 16268863 (Version 1)
Quarter: 2019Q2

REPORT INFORMATION
  Report Type: Spontaneous
  Country: US (occurrence: US)
  Receive Date: 20190503
  Receipt Date: 20190503
  Transmission Date: 20190711
  Serious: No
  Sender: FDA-Public Use
  Company Number: US-ZYDUS-032891

PATIENT
  Age: 64 Year
  Sex: Female

DRUGS (1)
  1. PAROXETINE. [Suspect]
     Active Substance: PAROXETINE
     Indication: PANIC ATTACK
     Route: 048

REACTIONS (5)
  - Sinusitis [Not Recovered/Not Resolved]
  - Eye disorder [Not Recovered/Not Resolved]
  - Dry eye [Not Recovered/Not Resolved]
  - Eye swelling [Not Recovered/Not Resolved]
  - Eye pain [Not Recovered/Not Resolved]
